FAERS Safety Report 20802609 (Version 1)
Quarter: 2022Q2

REPORT INFORMATION
  Report Type: Spontaneous
  Country: US (occurrence: None)
  Receive Date: 20220509
  Receipt Date: 20220509
  Transmission Date: 20220720
  Serious: Yes (Hospitalization)
  Sender: FDA-Public Use
  Company Number: None

PATIENT
  Age: 78 Year
  Sex: Male

DRUGS (2)
  1. APIXABAN [Suspect]
     Active Substance: APIXABAN
     Indication: Atrial fibrillation
     Dosage: FREQUENCY : TWICE A DAY;?
     Route: 048
     Dates: start: 20211013
  2. CLOPIDOGREL BISULFATE [Suspect]
     Active Substance: CLOPIDOGREL BISULFATE
     Indication: Stent placement
     Dosage: FREQUENCY : DAILY;?
     Route: 048
     Dates: start: 20220404

REACTIONS (11)
  - Rectal haemorrhage [None]
  - Arteriovenous malformation [None]
  - Haemoglobin decreased [None]
  - Blood pressure decreased [None]
  - Therapy interrupted [None]
  - Chest pain [None]
  - Hypoxia [None]
  - Sleep apnoea syndrome [None]
  - Diverticulum [None]
  - Polyp [None]
  - Cardiogenic shock [None]

NARRATIVE: CASE EVENT DATE: 20220407
